FAERS Safety Report 13047425 (Version 1)
Quarter: 2016Q4

REPORT INFORMATION
  Report Type: Not Available
  Country: None (occurrence: US)
  Receive Date: 20161220
  Receipt Date: 20161220
  Transmission Date: 20170207
  Serious: No
  Sender: FDA-Public Use
  Company Number: US-AKORN-40194

PATIENT
  Sex: Female

DRUGS (1)
  1. AZASITE [Suspect]
     Active Substance: AZITHROMYCIN MONOHYDRATE

REACTIONS (6)
  - Eye irritation [None]
  - Eye discharge [None]
  - Vision blurred [None]
  - Skin irritation [None]
  - Eye pain [None]
  - Eyelid oedema [None]
